FAERS Safety Report 7286786-X (Version None)
Quarter: 2011Q1

REPORT INFORMATION
  Report Type: 
  Country: None (occurrence: None)
  Receive Date: 20110210
  Receipt Date: 20110201
  Transmission Date: 20110831
  Serious: Yes (Hospitalization)
  Sender: FDA-Public Use
  Company Number: US-MERCK-0912USA00709

PATIENT
  Age: 74 Year
  Sex: Female
  Weight: 88 kg

DRUGS (6)
  1. FOSAMAX [Suspect]
     Indication: OSTEOPOROSIS
     Route: 048
     Dates: start: 20011101
  2. FOSAMAX [Suspect]
     Route: 048
     Dates: end: 20060101
  3. [THERAPY UNSPECIFIED] [Concomitant]
     Indication: HORMONE THERAPY
     Route: 065
     Dates: start: 19800101
  4. FOSAMAX [Suspect]
     Indication: OSTEOPENIA
     Route: 048
     Dates: start: 20011101
  5. FOSAMAX [Suspect]
     Route: 048
     Dates: end: 20060101
  6. CELEBREX [Concomitant]
     Route: 065

REACTIONS (35)
  - MYOCARDIAL ISCHAEMIA [None]
  - INCREASED TENDENCY TO BRUISE [None]
  - DIABETES MELLITUS [None]
  - GINGIVAL BLEEDING [None]
  - HYPERGLYCAEMIA [None]
  - HYPOAESTHESIA ORAL [None]
  - TOOTH EXTRACTION [None]
  - ATRIAL FIBRILLATION [None]
  - OSTEOARTHRITIS [None]
  - BONE DENSITY DECREASED [None]
  - ANTICOAGULANT THERAPY [None]
  - MOUTH ULCERATION [None]
  - DIARRHOEA [None]
  - TOOTH LOSS [None]
  - THYROID NEOPLASM [None]
  - PRURITUS [None]
  - CHEST PAIN [None]
  - BLOOD CHOLESTEROL INCREASED [None]
  - TRICUSPID VALVE INCOMPETENCE [None]
  - TOOTH FRACTURE [None]
  - ORAL DISORDER [None]
  - TYPE 2 DIABETES MELLITUS [None]
  - GINGIVAL INFECTION [None]
  - ANIMAL BITE [None]
  - MICTURITION URGENCY [None]
  - RENAL FAILURE CHRONIC [None]
  - MITRAL VALVE INCOMPETENCE [None]
  - MEMORY IMPAIRMENT [None]
  - BACK PAIN [None]
  - MALAISE [None]
  - CELLULITIS [None]
  - DIZZINESS [None]
  - HYPERTENSION [None]
  - ORAL INFECTION [None]
  - DENTAL CARIES [None]
